FAERS Safety Report 4781539-6 (Version None)
Quarter: 2005Q3

REPORT INFORMATION
  Report Type: 
  Country: None (occurrence: None)
  Receive Date: 20050928
  Receipt Date: 20050907
  Transmission Date: 20060218
  Serious: Yes (Hospitalization)
  Sender: FDA-Public Use
  Company Number: JP-ROCHE-416835

PATIENT
  Age: 72 Year
  Sex: Female

DRUGS (10)
  1. PANALDINE [Suspect]
     Indication: THROMBOSIS PROPHYLAXIS
     Dosage: OTHER INDICATIONS: CYPHER STENT PLACEMENT, PERCUTANEOUS CORONARY INTERVENTION.
     Route: 048
     Dates: start: 20041021, end: 20041214
  2. ASPIRIN [Concomitant]
     Route: 048
  3. MARZULENE S [Concomitant]
     Route: 048
  4. TANATRIL [Concomitant]
     Route: 048
  5. MAGNESIUM OXIDE [Concomitant]
     Dosage: TRADE NAME REPORTED AS MAGLAX.
     Route: 048
  6. GLYBURIDE [Concomitant]
     Route: 048
  7. THYRADIN S [Concomitant]
     Route: 048
  8. LIPITOR [Concomitant]
     Route: 048
  9. LASIX [Concomitant]
     Route: 048
  10. ALDACTONE [Concomitant]
     Route: 048

REACTIONS (5)
  - BILIARY CIRRHOSIS [None]
  - DECREASED APPETITE [None]
  - HEPATIC FUNCTION ABNORMAL [None]
  - JAUNDICE [None]
  - NAUSEA [None]
